FAERS Safety Report 21796292 (Version 1)
Quarter: 2022Q4

REPORT INFORMATION
  Report Type: Spontaneous
  Country: FR (occurrence: FR)
  Receive Date: 20221229
  Receipt Date: 20221229
  Transmission Date: 20230112
  Serious: Yes (Congenital Anomaly)
  Sender: FDA-Public Use
  Company Number: None

PATIENT
  Sex: Female

DRUGS (3)
  1. FYCOMPA [Suspect]
     Active Substance: PERAMPANEL
     Indication: Foetal exposure during pregnancy
     Dosage: DOSE AND FREQUENCY UNKNOWN
     Route: 064
     Dates: start: 20220111, end: 20220210
  2. CLOBAZAM [Suspect]
     Active Substance: CLOBAZAM
     Indication: Foetal exposure during pregnancy
     Route: 064
     Dates: start: 20220318, end: 20220724
  3. CLOBAZAM [Suspect]
     Active Substance: CLOBAZAM
     Indication: Generalised onset non-motor seizure
     Route: 064
     Dates: start: 20220725, end: 20221004

REACTIONS (2)
  - Foetal malnutrition [Not Recovered/Not Resolved]
  - Foetal exposure during pregnancy [Not Recovered/Not Resolved]

NARRATIVE: CASE EVENT DATE: 20220801
